FAERS Safety Report 16971169 (Version 1)
Quarter: 2019Q4

REPORT INFORMATION
  Report Type: Spontaneous
  Country: TH (occurrence: TH)
  Receive Date: 20191029
  Receipt Date: 20191029
  Transmission Date: 20200122
  Serious: Yes (Other)
  Sender: FDA-Public Use
  Company Number: TH-ASTRAZENECA-2019SF52856

PATIENT
  Age: 85 Year
  Sex: Female

DRUGS (1)
  1. IRESSA [Suspect]
     Active Substance: GEFITINIB
     Indication: LUNG NEOPLASM MALIGNANT
     Route: 048
     Dates: start: 20160426

REACTIONS (2)
  - Malignant neoplasm progression [Unknown]
  - Acquired gene mutation [Not Recovered/Not Resolved]

NARRATIVE: CASE EVENT DATE: 201808
